FAERS Safety Report 15453179 (Version 1)
Quarter: 2018Q4

REPORT INFORMATION
  Report Type: Spontaneous
  Country: US (occurrence: US)
  Receive Date: 20181001
  Receipt Date: 20181001
  Transmission Date: 20190204
  Serious: Yes (Other)
  Sender: FDA-Public Use
  Company Number: US-SA-2017SA008262

PATIENT
  Age: 8 Year
  Sex: Male
  Weight: 26.7 kg

DRUGS (21)
  1. POLYETHYLENE GLYCOL [Concomitant]
     Active Substance: POLYETHYLENE GLYCOLS
     Dosage: UNK UNK,PRN
     Route: 048
  2. GAS RELIEF [Concomitant]
     Active Substance: DIMETHICONE
     Dosage: 40 RNG/0.6 ML
     Route: 048
  3. QUETIAPINE. [Concomitant]
     Active Substance: QUETIAPINE
     Dosage: 25 MG, UNK
     Route: 065
  4. OCEAN SALINE NASAL SPRAY [Concomitant]
     Active Substance: SODIUM CHLORIDE
     Dosage: 0.65 % AEROSOL,SPRAY
     Route: 065
  5. LIDOCAINE;PRILOCAINE [Concomitant]
     Dosage: DOSE : 2.25 % ADHESIVE PATCH
  6. MULTIVITAMIN AND MINERAL SUPPLEMENT [Concomitant]
     Active Substance: MINERALS\VITAMINS
     Dosage: UNK UNK, UNK
     Route: 048
  7. BENADRYL [Concomitant]
     Active Substance: DIPHENHYDRAMINE HYDROCHLORIDE
     Indication: PREMEDICATION
     Dosage: 25 MG,PRN
     Route: 048
  8. LOPERAMIDE [Concomitant]
     Active Substance: LOPERAMIDE
     Dosage: 2 MG, UNK
     Route: 048
  9. NYSTATIN. [Concomitant]
     Active Substance: NYSTATIN
     Dosage: 100,000 UNIT/GRAM
     Route: 061
  10. VITAMIN D2 [Concomitant]
     Active Substance: ERGOCALCIFEROL
     Dosage: 400 U, QD
     Route: 048
  11. LISINOPRIL. [Concomitant]
     Active Substance: LISINOPRIL
     Dosage: 7.5 MG,QD
     Route: 048
  12. LACTOBAC [LACTOBACILLUS ACIDOPHILUS] [Concomitant]
     Dosage: 1 DF, QD
     Route: 048
  13. ALDURAZYME [Suspect]
     Active Substance: LARONIDASE
     Indication: MUCOPOLYSACCHARIDOSIS I
     Dosage: .56 MG/KG,QW
     Route: 041
     Dates: start: 20150617
  14. ALDURAZYME [Suspect]
     Active Substance: LARONIDASE
     Indication: MUCOPOLYSACCHARIDOSIS I
  15. MELATONIN [Concomitant]
     Active Substance: MELATONIN
     Dosage: 1 MG,PRN
     Route: 048
  16. SODIUM CHLORIDE. [Concomitant]
     Active Substance: SODIUM CHLORIDE
     Dosage: .65 %,QD
     Route: 045
  17. CLARITIN [LORATADINE] [Concomitant]
     Dosage: 5 MG/5 RNL SOLUTION
     Route: 065
  18. ACETAMINOPHEN. [Concomitant]
     Active Substance: ACETAMINOPHEN
     Indication: PREMEDICATION
     Dosage: 325 MG,PRN
     Route: 054
  19. MIRALAX [Concomitant]
     Active Substance: POLYETHYLENE GLYCOL 3350
     Indication: CONSTIPATION
     Dosage: UNK UNK, QD
  20. PREVAIL-FX ONE STEP [Concomitant]
     Active Substance: ISOPROPYL ALCOHOL\POVIDONE-IODINE
     Dosage: UNK UNK, UNKK
     Route: 065
  21. POLYVITAMIN DROPS [Concomitant]
     Dosage: 1,500-35-400 UNIT-MG-UNIT/RNLUNK
     Route: 048

REACTIONS (16)
  - Fatigue [Unknown]
  - General physical health deterioration [Unknown]
  - Gastroenteritis viral [Unknown]
  - Condition aggravated [Not Recovered/Not Resolved]
  - Cardiac disorder [Not Recovered/Not Resolved]
  - Mastication disorder [Unknown]
  - Speech disorder [Unknown]
  - Memory impairment [Unknown]
  - Joint stiffness [Unknown]
  - Dysphagia [Unknown]
  - Cardiac valve disease [Not Recovered/Not Resolved]
  - Dyspnoea [Not Recovered/Not Resolved]
  - Sleep apnoea syndrome [Unknown]
  - Mobility decreased [Unknown]
  - Ear tube insertion [Recovered/Resolved]
  - Pyrexia [Unknown]

NARRATIVE: CASE EVENT DATE: 201709
